FAERS Safety Report 10473282 (Version 1)
Quarter: 2014Q3

REPORT INFORMATION
  Report Type: Spontaneous
  Country: US (occurrence: US)
  Receive Date: 20140924
  Receipt Date: 20140924
  Transmission Date: 20150326
  Serious: Yes (Death, Other)
  Sender: FDA-Public Use
  Company Number: US-DRREDDYS-USA/USA/14/0043218

PATIENT
  Age: 7 Month
  Sex: Male

DRUGS (1)
  1. LANSOPRAZOLE DELAYED-RELEASE CAPSULES, USP [Suspect]
     Active Substance: LANSOPRAZOLE
     Indication: GASTROOESOPHAGEAL REFLUX DISEASE
     Route: 065

REACTIONS (6)
  - Clostridium difficile colitis [Fatal]
  - Ascites [None]
  - Cardiopulmonary failure [None]
  - Gastrointestinal disorder [None]
  - Retroperitoneal haemorrhage [None]
  - General physical health deterioration [None]
